FAERS Safety Report 7813895-6 (Version None)
Quarter: 2011Q4

REPORT INFORMATION
  Report Type: 
  Country: None (occurrence: None)
  Receive Date: 20111014
  Receipt Date: 20111003
  Transmission Date: 20120403
  Serious: Yes (Hospitalization, Other)
  Sender: FDA-Public Use
  Company Number: JP-PFIZER INC-2011245228

PATIENT
  Age: 54 Year
  Sex: Female

DRUGS (1)
  1. CELECOXIB [Suspect]
     Dosage: 200 MG, DAILY
     Route: 048
     Dates: start: 20110917, end: 20110930

REACTIONS (3)
  - DRUG ERUPTION [None]
  - PYREXIA [None]
  - STEVENS-JOHNSON SYNDROME [None]
